FAERS Safety Report 5317234-4 (Version None)
Quarter: 2007Q2

REPORT INFORMATION
  Report Type: 
  Country: None (occurrence: None)
  Receive Date: 20070504
  Receipt Date: 20070423
  Transmission Date: 20071010
  Serious: Yes (Other)
  Sender: FDA-Public Use
  Company Number: US-PFIZER INC-2007033049

PATIENT
  Sex: Female
  Weight: 70.3 kg

DRUGS (5)
  1. LINCOCIN [Suspect]
     Indication: SINUSITIS
     Route: 030
     Dates: start: 20061128, end: 20061128
  2. CELESTONE [Suspect]
     Indication: SINUS CONGESTION
     Route: 030
     Dates: start: 20061128, end: 20061128
  3. CELESTONE [Suspect]
     Indication: LACRIMATION INCREASED
  4. ALL OTHER THERAPEUTIC PRODUCTS [Concomitant]
  5. NASONEX [Concomitant]

REACTIONS (3)
  - LIMB DISCOMFORT [None]
  - MOVEMENT DISORDER [None]
  - PAIN [None]
